FAERS Safety Report 8176756-1 (Version None)
Quarter: 2012Q1

REPORT INFORMATION
  Report Type: 
  Country: None (occurrence: None)
  Receive Date: 20120301
  Receipt Date: 20120228
  Transmission Date: 20120608
  Serious: Yes (Hospitalization)
  Sender: FDA-Public Use
  Company Number: CO-ABBOTT-12P-036-0909632-00

PATIENT
  Sex: Male
  Weight: 71 kg

DRUGS (2)
  1. ARANDA [Concomitant]
     Indication: HYPERTENSION
     Route: 048
  2. HUMIRA [Suspect]
     Indication: ANKYLOSING SPONDYLITIS
     Route: 058
     Dates: start: 20111116, end: 20120215

REACTIONS (2)
  - ARTHRITIS [None]
  - ARTHRITIS BACTERIAL [None]
